FAERS Safety Report 25429625 (Version 1)
Quarter: 2025Q2

REPORT INFORMATION
  Report Type: Spontaneous
  Country: US (occurrence: None)
  Receive Date: 20250612
  Receipt Date: 20250612
  Transmission Date: 20250717
  Serious: No
  Sender: FDA-CTU
  Company Number: None

PATIENT
  Age: 51 Year
  Sex: Male
  Weight: 64.6 kg

DRUGS (13)
  1. JULUCA [Suspect]
     Active Substance: DOLUTEGRAVIR SODIUM\RILPIVIRINE HYDROCHLORIDE
     Indication: HIV infection
     Dosage: OTHER QUANTITY : 50-25 MG;?FREQUENCY : DAILY;?
     Route: 048
     Dates: start: 20211215, end: 20250514
  2. MONTELUKAST [Concomitant]
     Active Substance: MONTELUKAST
  3. TIZANIDINE [Concomitant]
     Active Substance: TIZANIDINE
  4. ONDANSETRON [Concomitant]
     Active Substance: ONDANSETRON
  5. CLONAZEPAM [Concomitant]
     Active Substance: CLONAZEPAM
  6. SERTRALINE [Concomitant]
     Active Substance: SERTRALINE HYDROCHLORIDE
  7. SUMATRIPTAN [Concomitant]
     Active Substance: SUMATRIPTAN
  8. VENTOLIN HFA INH [Concomitant]
  9. MELATONIN [Concomitant]
     Active Substance: MELATONIN
  10. VITAMINS [Concomitant]
     Active Substance: VITAMINS
  11. GABAPENTI N [Concomitant]
  12. AMITRIPTYLINE [Concomitant]
     Active Substance: AMITRIPTYLINE
  13. FLUTICASONE/SALM [Concomitant]

REACTIONS (1)
  - Adverse drug reaction [None]

NARRATIVE: CASE EVENT DATE: 20250514
